FAERS Safety Report 4281456-4 (Version None)
Quarter: 2004Q1

REPORT INFORMATION
  Report Type: 
  Country: None (occurrence: None)
  Receive Date: 20040112
  Receipt Date: 20030924
  Transmission Date: 20041129
  Serious: Yes (Other)
  Sender: FDA-Public Use
  Company Number: 340111

PATIENT
  Sex: Female

DRUGS (2)
  1. FUZEON [Suspect]
     Indication: HIV INFECTION
     Dosage: 90 MG 2 PER DAY, SUBCUTANEOUS
     Route: 058
     Dates: start: 20030605
  2. INSULIN [Concomitant]

REACTIONS (8)
  - INJECTION SITE INFLAMMATION [None]
  - INJECTION SITE PAIN [None]
  - INJECTION SITE PRURITUS [None]
  - INJECTION SITE REACTION [None]
  - INJECTION SITE SWELLING [None]
  - MEDICATION ERROR [None]
  - NO ADVERSE EFFECT [None]
  - SKIN DISORDER [None]
